FAERS Safety Report 4514661-X (Version None)
Quarter: 2004Q4

REPORT INFORMATION
  Report Type: 
  Country: None (occurrence: None)
  Receive Date: 20041126
  Receipt Date: 20041123
  Transmission Date: 20050328
  Serious: Yes (Other)
  Sender: FDA-Public Use
  Company Number: 028-20785-03090371

PATIENT
  Age: 38 Year
  Sex: Female

DRUGS (8)
  1. THALOMID [Suspect]
     Indication: MULTIPLE MYELOMA
     Dosage: SEE  IMAGE
     Route: 048
     Dates: end: 20030701
  2. THALOMID [Suspect]
     Indication: MULTIPLE MYELOMA
     Dosage: SEE  IMAGE
     Route: 048
     Dates: end: 20041101
  3. THALOMID [Suspect]
     Indication: MULTIPLE MYELOMA
     Dosage: SEE  IMAGE
     Route: 048
     Dates: start: 20030901
  4. THALOMID [Suspect]
     Indication: MULTIPLE MYELOMA
     Dosage: SEE  IMAGE
     Route: 048
     Dates: start: 20041101
  5. CYCLOPHOSPHAMIDE [Concomitant]
  6. PAMIDRONATE (PAMIDRONATE SODIUM) [Concomitant]
  7. DEXAMETHASONE [Concomitant]
  8. COUMADIN [Concomitant]

REACTIONS (7)
  - BLOOD FOLLICLE STIMULATING HORMONE INCREASED [None]
  - BLOOD HUMAN CHORIONIC GONADOTROPIN INCREASED [None]
  - BLOOD LUTEINISING HORMONE INCREASED [None]
  - MALIGNANT NEOPLASM PROGRESSION [None]
  - MULTIPLE MYELOMA [None]
  - NEUROPATHY [None]
  - OESTRADIOL INCREASED [None]
